FAERS Safety Report 4437483-7 (Version None)
Quarter: 2004Q3

REPORT INFORMATION
  Report Type: 
  Country: None (occurrence: None)
  Receive Date: 20040830
  Receipt Date: 20040830
  Transmission Date: 20050211
  Serious: Yes (Hospitalization)
  Sender: FDA-Public Use
  Company Number: None

PATIENT
  Age: 47 Year
  Sex: Female
  Weight: 76.2 kg

DRUGS (2)
  1. MELOXICAM [Suspect]
     Dosage: 15 MG ONLY ONCE ORALLY TAKEN
     Route: 048
     Dates: start: 20040721
  2. MOBIC [Suspect]
     Dosage: 15 MG ONLY ONCE ORALLY TAKEN
     Route: 048
     Dates: start: 20040804

REACTIONS (2)
  - HEADACHE [None]
  - MUSCULOSKELETAL STIFFNESS [None]
